FAERS Safety Report 8617219-6 (Version None)
Quarter: 2012Q3

REPORT INFORMATION
  Report Type: 
  Country: None (occurrence: None)
  Receive Date: 20120823
  Receipt Date: 20120816
  Transmission Date: 20120928
  Serious: Yes (Hospitalization, Other)
  Sender: FDA-Public Use
  Company Number: US-ASTRAZENECA-2012SE50365

PATIENT
  Age: 76 Year
  Sex: Female

DRUGS (1)
  1. SYMBICORT [Suspect]
     Dosage: UNKNOWN
     Route: 055

REACTIONS (10)
  - MALAISE [None]
  - GAIT DISTURBANCE [None]
  - PNEUMONIA [None]
  - OEDEMA PERIPHERAL [None]
  - MUSCULOSKELETAL DISORDER [None]
  - FALL [None]
  - INTENTIONAL DRUG MISUSE [None]
  - INJURY [None]
  - UPPER LIMB FRACTURE [None]
  - MEMORY IMPAIRMENT [None]
